FAERS Safety Report 5240520-3 (Version None)
Quarter: 2007Q1

REPORT INFORMATION
  Report Type: 
  Country: None (occurrence: None)
  Receive Date: 20070219
  Receipt Date: 20070208
  Transmission Date: 20070707
  Serious: Yes (Disabling)
  Sender: FDA-Public Use
  Company Number: NL-ROCHE-472343

PATIENT
  Age: 58 Year
  Sex: Male

DRUGS (6)
  1. PEGASYS [Suspect]
     Indication: POLYCYTHAEMIA VERA
     Route: 058
     Dates: start: 20060115, end: 20061015
  2. ROFERON-A [Suspect]
     Indication: POLYCYTHAEMIA VERA
     Route: 065
  3. ROFERON-A [Suspect]
     Route: 065
     Dates: start: 20050615, end: 20051215
  4. HYDREA [Concomitant]
     Indication: POLYCYTHAEMIA VERA
     Dates: start: 20030615
  5. SELOKEEN [Concomitant]
     Indication: HYPERTENSION
     Dosage: DOSING INCREASED FORM 50 MG DAILY TO 100 MG DAILY IN 2006.
     Route: 048
     Dates: start: 20060615
  6. ENALAPRIL MALEATE [Concomitant]
     Indication: HYPERTENSION
     Route: 048

REACTIONS (5)
  - HYPERTENSION [None]
  - MALAISE [None]
  - NEPHROPATHY TOXIC [None]
  - PROTEINURIA [None]
  - RENAL FAILURE [None]
